FAERS Safety Report 17867240 (Version 1)
Quarter: 2020Q2

REPORT INFORMATION
  Report Type: Spontaneous
  Country: US (occurrence: US)
  Receive Date: 20200605
  Receipt Date: 20200605
  Transmission Date: 20200714
  Serious: Yes (Other)
  Sender: FDA-Public Use
  Company Number: US-ASTRAZENECA-2020SE71570

PATIENT
  Age: 845 Month
  Sex: Female
  Weight: 72.6 kg

DRUGS (12)
  1. METFORMIN [Concomitant]
     Active Substance: METFORMIN HYDROCHLORIDE
     Dates: start: 2005
  2. MELATONIN [Concomitant]
     Active Substance: MELATONIN
     Dates: start: 2005
  3. ASPIRIN. [Concomitant]
     Active Substance: ASPIRIN
     Dates: start: 2005
  4. MOTRIN [Concomitant]
     Active Substance: IBUPROFEN
     Indication: NECK PAIN
     Dates: start: 2020
  5. HYDROCHLOROTHIAZIDE. [Concomitant]
     Active Substance: HYDROCHLOROTHIAZIDE
     Dates: start: 2005
  6. LORATADINE. [Concomitant]
     Active Substance: LORATADINE
     Dates: start: 2005
  7. BYETTA [Suspect]
     Active Substance: EXENATIDE
     Indication: DIABETES MELLITUS
     Route: 058
     Dates: start: 2005
  8. PREMPRO [Concomitant]
     Active Substance: ESTROGENS, CONJUGATED\MEDROXYPROGESTERONE ACETATE
     Dates: start: 2005
  9. GABATINE [Suspect]
     Active Substance: GABAPENTIN
     Indication: NECK PAIN
     Route: 065
     Dates: start: 2020
  10. LISINOPRIL. [Concomitant]
     Active Substance: LISINOPRIL
     Dates: start: 2005
  11. MELOXICAM. [Concomitant]
     Active Substance: MELOXICAM
     Dates: start: 2005
  12. SPIRONOLACTONE. [Concomitant]
     Active Substance: SPIRONOLACTONE
     Dates: start: 2005

REACTIONS (7)
  - Road traffic accident [Not Recovered/Not Resolved]
  - Hallucination [Recovered/Resolved]
  - Neck pain [Not Recovered/Not Resolved]
  - Device issue [Not Recovered/Not Resolved]
  - Dizziness [Recovered/Resolved]
  - Drug dose omission by device [Not Recovered/Not Resolved]
  - Body height decreased [Not Recovered/Not Resolved]

NARRATIVE: CASE EVENT DATE: 202002
